FAERS Safety Report 16097577 (Version 1)
Quarter: 2019Q1

REPORT INFORMATION
  Report Type: Report from Study
  Country: US (occurrence: US)
  Receive Date: 20190320
  Receipt Date: 20190320
  Transmission Date: 20190418
  Serious: Yes (Life-Threatening)
  Sender: FDA-Public Use
  Company Number: US-GILEAD-2019-0396715

PATIENT
  Age: 36 Year
  Sex: Male

DRUGS (9)
  1. CABOTEGRAVIR VS PLACEBO [Concomitant]
     Dosage: 200 MG/ML, 3 ML, ONCE
     Route: 030
     Dates: start: 20170807, end: 20170807
  2. CABOTEGRAVIR VS PLACEBO [Concomitant]
     Dosage: 30 MG, QD
     Route: 048
     Dates: start: 20170630, end: 20170807
  3. LUTEIN + [Concomitant]
     Indication: VITAMIN SUPPLEMENTATION
     Dosage: 20 MG, QD
     Route: 048
     Dates: start: 20190128
  4. FISH OIL [Concomitant]
     Active Substance: FISH OIL
     Dosage: 500 MG, QD
     Route: 048
     Dates: start: 20190128
  5. BLINDED EMTRICITABINE/TENOFOVIR DISOPROXIL FUMARATE [Suspect]
     Active Substance: EMTRICITABINE\TENOFOVIR DISOPROXIL
     Indication: PROPHYLAXIS AGAINST HIV INFECTION
     Dosage: 500 MG, QD
     Route: 048
     Dates: start: 20170630, end: 20190312
  6. PREDNISONE. [Concomitant]
     Active Substance: PREDNISONE
     Indication: SINUSITIS
     Dosage: 20 MG, QD
     Route: 048
     Dates: start: 20190304, end: 20190311
  7. CABOTEGRAVIR VS PLACEBO [Concomitant]
     Indication: PROPHYLAXIS AGAINST HIV INFECTION
     Dosage: 200 MG/ML, 3 ML, Q8W
     Route: 030
     Dates: start: 20170830, end: 20190311
  8. AZITHROMYCIN ANHYDROUS. [Concomitant]
     Active Substance: AZITHROMYCIN ANHYDROUS
     Indication: SINUSITIS
     Dosage: 250 MG, QD
     Route: 048
     Dates: start: 20190304, end: 20190308
  9. BLINDED PLACEBO [Suspect]
     Active Substance: INVESTIGATIONAL PRODUCT
     Indication: PROPHYLAXIS AGAINST HIV INFECTION
     Dosage: 500 MG, QD
     Route: 048
     Dates: start: 20170630, end: 20190312

REACTIONS (1)
  - Alanine aminotransferase increased [Not Recovered/Not Resolved]

NARRATIVE: CASE EVENT DATE: 20190312
